FAERS Safety Report 21371394 (Version 2)
Quarter: 2022Q4

REPORT INFORMATION
  Report Type: Spontaneous
  Country: US (occurrence: None)
  Receive Date: 20220923
  Receipt Date: 20221006
  Transmission Date: 20230113
  Serious: No
  Sender: FDA-Public Use
  Company Number: 2022A299046

PATIENT
  Age: 873 Month
  Sex: Female
  Weight: 69.9 kg

DRUGS (2)
  1. BREZTRI [Suspect]
     Active Substance: BUDESONIDE\FORMOTEROL\GLYCOPYRROLATE
     Indication: Chronic obstructive pulmonary disease
     Dosage: 60/9/4.8 UG, 2 PUFFS TWICE EACH DAY
     Route: 055
     Dates: start: 202201
  2. SYMBICORT [Suspect]
     Active Substance: BUDESONIDE\FORMOTEROL FUMARATE DIHYDRATE
     Indication: Chronic obstructive pulmonary disease
     Dosage: 160/4.5 TWO PUFFS TWICE EACH DAY
     Route: 055
     Dates: end: 202201

REACTIONS (7)
  - Dyspnoea [Recovering/Resolving]
  - Abdominal discomfort [Recovered/Resolved]
  - COVID-19 [Recovered/Resolved]
  - Feeling abnormal [Recovering/Resolving]
  - Device use issue [Recovered/Resolved]
  - Device delivery system issue [Unknown]
  - Product dose omission issue [Recovered/Resolved]

NARRATIVE: CASE EVENT DATE: 20220101
